FAERS Safety Report 12871639 (Version 1)
Quarter: 2016Q4

REPORT INFORMATION
  Report Type: Spontaneous
  Country: US (occurrence: US)
  Receive Date: 20161020
  Receipt Date: 20161020
  Transmission Date: 20170207
  Serious: No
  Sender: FDA-Public Use
  Company Number: None

PATIENT
  Sex: Female

DRUGS (1)
  1. VELCADE [Suspect]
     Active Substance: BORTEZOMIB
     Indication: PLASMA CELL MYELOMA
     Route: 058
     Dates: start: 20160726

REACTIONS (7)
  - Bone pain [None]
  - Dry skin [None]
  - Burning sensation [None]
  - Dyspepsia [None]
  - Myalgia [None]
  - Decreased appetite [None]
  - Skin discolouration [None]
